FAERS Safety Report 23225784 (Version 1)
Quarter: 2023Q4

REPORT INFORMATION
  Report Type: Spontaneous
  Country: US (occurrence: US)
  Receive Date: 20231124
  Receipt Date: 20231124
  Transmission Date: 20240110
  Serious: No
  Sender: FDA-Public Use
  Company Number: US-SA-SAC20231121001160

PATIENT
  Sex: Female

DRUGS (4)
  1. DUPIXENT [Suspect]
     Active Substance: DUPILUMAB
     Indication: Eosinophilic oesophagitis
     Dosage: 300 MG, QW
     Route: 058
     Dates: start: 202212
  2. DUPIXENT [Suspect]
     Active Substance: DUPILUMAB
     Indication: Furuncle
  3. DUPIXENT [Suspect]
     Active Substance: DUPILUMAB
     Indication: Subcutaneous abscess
  4. DUPIXENT [Suspect]
     Active Substance: DUPILUMAB
     Indication: Pharyngitis

REACTIONS (1)
  - Product use in unapproved indication [Unknown]

NARRATIVE: CASE EVENT DATE: 20221201
